FAERS Safety Report 21464767 (Version 1)
Quarter: 2022Q4

REPORT INFORMATION
  Report Type: Spontaneous
  Country: US (occurrence: US)
  Receive Date: 20221017
  Receipt Date: 20221017
  Transmission Date: 20230113
  Serious: Yes (Other)
  Sender: FDA-Public Use
  Company Number: US-SA-SAC20221013002072

PATIENT
  Age: 47 Year
  Sex: Male

DRUGS (1)
  1. ZANTAC [Suspect]
     Active Substance: RANITIDINE HYDROCHLORIDE
     Indication: Dyspepsia
     Dosage: 150 MG, QD
     Dates: start: 199001, end: 201902

REACTIONS (3)
  - Renal cancer stage III [Recovering/Resolving]
  - Hepatic cancer stage III [Recovering/Resolving]
  - Lung carcinoma cell type unspecified stage III [Recovering/Resolving]

NARRATIVE: CASE EVENT DATE: 20110201
